FAERS Safety Report 13158263 (Version 2)
Quarter: 2017Q1

REPORT INFORMATION
  Report Type: Spontaneous
  Country: RU (occurrence: RU)
  Receive Date: 20170127
  Receipt Date: 20170207
  Transmission Date: 20170428
  Serious: Yes (Other)
  Sender: FDA-Public Use
  Company Number: RU-ASTRAZENECA-2017SE08713

PATIENT
  Age: 65 Year
  Sex: Female
  Weight: 99 kg

DRUGS (10)
  1. CONCOR [Concomitant]
     Active Substance: BISOPROLOL FUMARATE
  2. MOXONIDINE [Concomitant]
     Active Substance: MOXONIDINE
  3. LORISTA [Concomitant]
     Active Substance: LOSARTAN POTASSIUM
  4. LASOLVAN [Concomitant]
     Active Substance: AMBROXOL HYDROCHLORIDE
  5. TEATAR [Concomitant]
  6. LERKAMEN [Concomitant]
  7. ATORVASTATIN [Concomitant]
     Active Substance: ATORVASTATIN
  8. BERODUAL [Concomitant]
     Active Substance: FENOTEROL HYDROBROMIDE\IPRATROPIUM BROMIDE
  9. FORXIGA [Suspect]
     Active Substance: DAPAGLIFLOZIN
     Indication: TYPE 2 DIABETES MELLITUS
     Route: 048
     Dates: start: 201607
  10. PEKTROL [Concomitant]
     Active Substance: ISOSORBIDE MONONITRATE

REACTIONS (4)
  - Bronchospasm [Recovering/Resolving]
  - Viral infection [Recovering/Resolving]
  - Nasal congestion [Recovering/Resolving]
  - Cough [Recovering/Resolving]

NARRATIVE: CASE EVENT DATE: 201701
